FAERS Safety Report 25508978 (Version 1)
Quarter: 2025Q3

REPORT INFORMATION
  Report Type: Spontaneous
  Country: EU (occurrence: EU)
  Receive Date: 20250703
  Receipt Date: 20250703
  Transmission Date: 20251020
  Serious: Yes (Hospitalization)
  Sender: AUROBINDO
  Company Number: EU-LRB-01069386

PATIENT
  Age: 72 Year
  Sex: Female
  Weight: 77 kg

DRUGS (3)
  1. AZITHROMYCIN [Suspect]
     Active Substance: AZITHROMYCIN
     Indication: Antibiotic prophylaxis
     Dosage: 500 MILLIGRAM, EVERY OTHER DAY (3 XIN DE WEEK 500 MG)
     Route: 048
     Dates: start: 20250529, end: 20250608
  2. BUPROPION [Suspect]
     Active Substance: BUPROPION
     Indication: Depression
     Dosage: 1 DOSAGE FORM, ONCE A DAY (1 X PER DAY)
     Route: 048
     Dates: start: 20250528, end: 20250608
  3. VERAPAMIL [Concomitant]
     Active Substance: VERAPAMIL HYDROCHLORIDE
     Indication: Product used for unknown indication
     Route: 048

REACTIONS (1)
  - Depression [Not Recovered/Not Resolved]
